FAERS Safety Report 9261487 (Version 1)
Quarter: 2013Q2

REPORT INFORMATION
  Report Type: Spontaneous
  Country: BR (occurrence: BR)
  Receive Date: 20130429
  Receipt Date: 20130429
  Transmission Date: 20140414
  Serious: Yes (Other)
  Sender: FDA-Public Use
  Company Number: BR-ASTRAZENECA-2013SE26749

PATIENT
  Age: 52 Year
  Sex: Male
  Weight: 92 kg

DRUGS (5)
  1. ATENOL [Suspect]
     Indication: HYPERTENSION
     Route: 048
     Dates: start: 2009
  2. NEXIUM [Suspect]
     Indication: GASTROOESOPHAGEAL REFLUX DISEASE
     Route: 048
     Dates: start: 201301, end: 20130416
  3. NEXIUM [Suspect]
     Indication: GASTROOESOPHAGEAL REFLUX DISEASE
     Route: 048
  4. HIGROTON [Suspect]
     Indication: HYPERTENSION
     Route: 065
     Dates: start: 201301
  5. FUROSETRON [Concomitant]
     Indication: HYPERTENSION
     Dosage: TWO TIMES A DAY
     Dates: start: 2009

REACTIONS (4)
  - Blood pressure increased [Recovered/Resolved]
  - Gastrooesophageal reflux disease [Recovering/Resolving]
  - Off label use [Not Recovered/Not Resolved]
  - Drug ineffective [Unknown]
